FAERS Safety Report 25202911 (Version 1)
Quarter: 2025Q2

REPORT INFORMATION
  Report Type: Report from Study
  Country: US (occurrence: US)
  Receive Date: 20250416
  Receipt Date: 20250416
  Transmission Date: 20250716
  Serious: Yes (Death)
  Sender: BAYER
  Company Number: US-BAYER-2025A050877

PATIENT
  Age: 72 Year
  Sex: Female
  Weight: 95.238 kg

DRUGS (25)
  1. ADEMPAS [Suspect]
     Active Substance: RIOCIGUAT
     Indication: Pulmonary arterial hypertension
     Dosage: 0.5 MG, TID
     Route: 048
     Dates: start: 20250325
  2. VITAMIN D2 [Concomitant]
     Active Substance: ERGOCALCIFEROL
  3. CYMBALTA [Concomitant]
     Active Substance: DULOXETINE HYDROCHLORIDE
  4. OMEPRAZOLE [Concomitant]
     Active Substance: OMEPRAZOLE
  5. COLACE [Concomitant]
     Active Substance: DOCUSATE SODIUM
  6. THIAMINE HYDROCHLORIDE [Concomitant]
     Active Substance: THIAMINE HYDROCHLORIDE
  7. MIRALAX [Concomitant]
     Active Substance: POLYETHYLENE GLYCOL 3350
  8. PULMICORT FLEXHALER [Concomitant]
     Active Substance: BUDESONIDE
  9. SINGULAIR [Concomitant]
     Active Substance: MONTELUKAST SODIUM
  10. LEVOTHYROXINE SODIUM [Concomitant]
     Active Substance: LEVOTHYROXINE SODIUM
  11. OPSUMIT [Concomitant]
     Active Substance: MACITENTAN
  12. FLONASE ALLERGY RELIEF [Concomitant]
     Active Substance: FLUTICASONE PROPIONATE
  13. GABAPENTIN [Concomitant]
     Active Substance: GABAPENTIN
  14. POTASSIUM CHLORIDE [Concomitant]
     Active Substance: POTASSIUM CHLORIDE
  15. LAMICTAL [Concomitant]
     Active Substance: LAMOTRIGINE
  16. PEPCID [Concomitant]
     Active Substance: FAMOTIDINE
  17. METOPROLOL SUCCINATE [Concomitant]
     Active Substance: METOPROLOL SUCCINATE
  18. VITAMINS [Concomitant]
     Active Substance: VITAMINS
  19. UPTRAVI [Concomitant]
     Active Substance: SELEXIPAG
  20. DICYCLOMINE HYDROCHLORIDE [Concomitant]
     Active Substance: DICYCLOMINE HYDROCHLORIDE
  21. FUROSEMIDE [Concomitant]
     Active Substance: FUROSEMIDE
  22. IBUPROFEN [Concomitant]
     Active Substance: IBUPROFEN
  23. ONDANSETRON HYDROCHLORIDE [Concomitant]
     Active Substance: ONDANSETRON HYDROCHLORIDE
  24. Calcium d glucarate [Concomitant]
  25. QUETIAPINE FUMARATE [Concomitant]
     Active Substance: QUETIAPINE FUMARATE

REACTIONS (1)
  - Death [Fatal]

NARRATIVE: CASE EVENT DATE: 20250327
